FAERS Safety Report 8803982 (Version 1)
Quarter: 2012Q4

REPORT INFORMATION
  Report Type: 
  Country: GB (occurrence: GB)
  Receive Date: 20120923
  Receipt Date: 20120923
  Transmission Date: 20130627
  Serious: Yes (Other)
  Sender: FDA-Public Use
  Company Number: GB-TEVA-358390ISR

PATIENT
  Age: 92 Year
  Sex: Female

DRUGS (5)
  1. OLANZAPINE [Suspect]
     Indication: PSYCHOTIC DISORDER
     Route: 048
     Dates: start: 20120703, end: 20120801
  2. PROPRANOLOL [Concomitant]
     Dosage: 40 Milligram Daily;
     Route: 048
     Dates: start: 1998
  3. ASPIRIN [Concomitant]
     Dosage: 75 Milligram Daily;
     Route: 048
     Dates: start: 1998
  4. ADCAL [Concomitant]
     Dosage: 2 Dosage forms Daily;
     Route: 048
     Dates: start: 20080610
  5. CO-AMILOFRUSE [Concomitant]
     Dosage: 1 Dosage forms Daily;
     Route: 048
     Dates: start: 1998

REACTIONS (1)
  - Jaundice cholestatic [Recovering/Resolving]
